FAERS Safety Report 6547782-0 (Version None)
Quarter: 2010Q1

REPORT INFORMATION
  Report Type: 
  Country: None (occurrence: None)
  Receive Date: 20100124
  Receipt Date: 20091009
  Transmission Date: 20100710
  Serious: No
  Sender: FDA-Public Use
  Company Number: US-ALEXION-A200900825

PATIENT
  Sex: Female

DRUGS (8)
  1. SOLIRIS [Suspect]
     Indication: PAROXYSMAL NOCTURNAL HAEMOGLOBINURIA
     Dosage: 600 MG, QW
     Route: 042
     Dates: start: 20090603, end: 20090601
  2. SOLIRIS [Suspect]
     Dosage: 900 MG, Q2W
     Route: 042
     Dates: start: 20090701
  3. HYDROCHLOROTHIAZIDE [Suspect]
     Indication: HYPERTENSION
  4. PREDNISONE [Concomitant]
     Indication: PAROXYSMAL NOCTURNAL HAEMOGLOBINURIA
     Dosage: 5 MG, QOD
     Route: 048
     Dates: start: 20090101
  5. SPIRONOLACTONE [Concomitant]
     Indication: HYPERTENSION
  6. ATENOLOL [Concomitant]
     Indication: HYPERTENSION
     Dosage: UNK
     Route: 048
  7. KLOR-CON [Concomitant]
     Dosage: 20 MEQ, 3/DAY
  8. KLOR-CON [Concomitant]
     Dosage: 20 MEQ, 6/DAY

REACTIONS (5)
  - BLOOD POTASSIUM DECREASED [None]
  - FATIGUE [None]
  - HEADACHE [None]
  - PAIN [None]
  - PRURITUS [None]
